FAERS Safety Report 6207369-6 (Version None)
Quarter: 2009Q2

REPORT INFORMATION
  Report Type: 
  Country: None (occurrence: None)
  Receive Date: 20090528
  Receipt Date: 20090518
  Transmission Date: 20091009
  Serious: Yes (Other)
  Sender: FDA-Public Use
  Company Number: IE-PFIZER INC-2009214910

PATIENT
  Age: 84 Year

DRUGS (6)
  1. LYRICA [Suspect]
     Indication: SCIATICA
     Dosage: 25 MG, 2X/DAY
     Route: 048
     Dates: start: 20090220
  2. WARFARIN [Suspect]
     Dosage: 1 MG, UNK
     Route: 048
  3. NEXIUM [Concomitant]
  4. CARDURA [Concomitant]
  5. CARDICOR [Concomitant]
  6. FUROSEMIDE [Concomitant]

REACTIONS (1)
  - INTERNATIONAL NORMALISED RATIO [None]
